FAERS Safety Report 22084219 (Version 4)
Quarter: 2023Q2

REPORT INFORMATION
  Report Type: Report from Study
  Country: CA (occurrence: CA)
  Receive Date: 20230310
  Receipt Date: 20230516
  Transmission Date: 20230722
  Serious: Yes (Death, Hospitalization, Other)
  Sender: FDA-Public Use
  Company Number: CA-HLS-202107014

PATIENT
  Age: 33 Year
  Sex: Male
  Weight: 88 kg

DRUGS (1)
  1. CLOZARIL [Suspect]
     Active Substance: CLOZAPINE
     Indication: Schizophrenia
     Dosage: 275 MG/DAY
     Route: 048
     Dates: end: 20230414

REACTIONS (3)
  - Neoplasm malignant [Unknown]
  - Malignant melanoma [Fatal]
  - Hepatic cancer metastatic [Unknown]

NARRATIVE: CASE EVENT DATE: 20200923
